FAERS Safety Report 18664577 (Version 6)
Quarter: 2022Q3

REPORT INFORMATION
  Report Type: Spontaneous
  Country: GB (occurrence: GB)
  Receive Date: 20201225
  Receipt Date: 20220915
  Transmission Date: 20221027
  Serious: Yes (Other)
  Sender: FDA-Public Use
  Company Number: GB-BIOVITRUM-2020GB7888

PATIENT
  Age: 53 Year
  Sex: Male

DRUGS (44)
  1. ORFADIN [Suspect]
     Active Substance: NITISINONE
     Indication: Alkaptonuria
     Dosage: 2 MG
     Dates: start: 2014
  2. FENTANYL [Concomitant]
     Active Substance: FENTANYL
     Dates: start: 2014
  3. FENTANYL [Concomitant]
     Active Substance: FENTANYL
     Dosage: PATCHES
     Dates: start: 2016
  4. IBUPROFEN [Concomitant]
     Active Substance: IBUPROFEN
     Dates: start: 2014
  5. IBUPROFEN [Concomitant]
     Active Substance: IBUPROFEN
     Dates: start: 2016
  6. IBUPROFEN [Concomitant]
     Active Substance: IBUPROFEN
     Dates: start: 2017
  7. IBUPROFEN [Concomitant]
     Active Substance: IBUPROFEN
     Dates: start: 2018
  8. IBUPROFEN [Concomitant]
     Active Substance: IBUPROFEN
     Dates: start: 2019
  9. IBUPROFEN [Concomitant]
     Active Substance: IBUPROFEN
     Dates: start: 2020
  10. TRAMADOL [Concomitant]
     Active Substance: TRAMADOL
     Dates: start: 2014
  11. TRAMADOL [Concomitant]
     Active Substance: TRAMADOL
     Dates: start: 2017
  12. TRAMADOL [Concomitant]
     Active Substance: TRAMADOL
     Dates: start: 2018
  13. AMITRIPTYLINE [Concomitant]
     Active Substance: AMITRIPTYLINE
     Dates: start: 2014
  14. AMITRIPTYLINE [Concomitant]
     Active Substance: AMITRIPTYLINE
     Dates: start: 2016
  15. AMITRIPTYLINE [Concomitant]
     Active Substance: AMITRIPTYLINE
     Dates: start: 2017
  16. AMITRIPTYLINE [Concomitant]
     Active Substance: AMITRIPTYLINE
     Dates: start: 2018
  17. AMITRIPTYLINE [Concomitant]
     Active Substance: AMITRIPTYLINE
     Dates: start: 2020
  18. SIMVASTATIN [Concomitant]
     Active Substance: SIMVASTATIN
     Dates: start: 2014
  19. SIMVASTATIN [Concomitant]
     Active Substance: SIMVASTATIN
     Dates: start: 2016
  20. SIMVASTATIN [Concomitant]
     Active Substance: SIMVASTATIN
     Dates: start: 2017
  21. SIMVASTATIN [Concomitant]
     Active Substance: SIMVASTATIN
     Dates: start: 2018
  22. CETIRIZINE [Concomitant]
     Active Substance: CETIRIZINE HYDROCHLORIDE
     Dates: start: 2015
  23. OMEPRAZOLE [Concomitant]
     Active Substance: OMEPRAZOLE
     Dates: start: 2015
  24. OMEPRAZOLE [Concomitant]
     Active Substance: OMEPRAZOLE
     Dates: start: 2016
  25. OMEPRAZOLE [Concomitant]
     Active Substance: OMEPRAZOLE
     Dates: start: 2017
  26. OMEPRAZOLE [Concomitant]
     Active Substance: OMEPRAZOLE
     Dates: start: 2018
  27. OMEPRAZOLE [Concomitant]
     Active Substance: OMEPRAZOLE
     Dates: start: 2019
  28. OMEPRAZOLE [Concomitant]
     Active Substance: OMEPRAZOLE
     Dates: start: 2020
  29. ACYCLOVIR [Concomitant]
     Active Substance: ACYCLOVIR
     Dates: start: 2015
  30. ACYCLOVIR [Concomitant]
     Active Substance: ACYCLOVIR
     Dates: start: 2016
  31. ACYCLOVIR [Concomitant]
     Active Substance: ACYCLOVIR
     Dates: start: 2017
  32. ACYCLOVIR [Concomitant]
     Active Substance: ACYCLOVIR
     Dates: start: 2018
  33. ACYCLOVIR [Concomitant]
     Active Substance: ACYCLOVIR
     Dates: start: 2019
  34. ACYCLOVIR [Concomitant]
     Active Substance: ACYCLOVIR
     Dates: start: 2020
  35. ACETAMINOPHEN [Concomitant]
     Active Substance: ACETAMINOPHEN
     Dosage: 500 MG
     Dates: start: 2016
  36. ACETAMINOPHEN [Concomitant]
     Active Substance: ACETAMINOPHEN
     Dates: start: 2017
  37. ACETAMINOPHEN [Concomitant]
     Active Substance: ACETAMINOPHEN
     Dates: start: 2018
  38. ACETAMINOPHEN [Concomitant]
     Active Substance: ACETAMINOPHEN
     Dates: start: 2019
  39. ACETAMINOPHEN [Concomitant]
     Active Substance: ACETAMINOPHEN
     Dates: start: 2020
  40. ALENDRONIC ACID [Concomitant]
     Active Substance: ALENDRONIC ACID
     Dosage: 70 MG
  41. NEURONTIN [Concomitant]
     Active Substance: GABAPENTIN
     Dosage: 300 MG
  42. CALCIUM CARBONATE [Concomitant]
     Active Substance: CALCIUM CARBONATE
     Dosage: 500 MG
     Dates: start: 2020
  43. FENTANYL [Concomitant]
     Active Substance: FENTANYL
  44. FENTANYL [Concomitant]
     Active Substance: FENTANYL

REACTIONS (3)
  - Lenticular opacities [Not Recovered/Not Resolved]
  - Cataract [Not Recovered/Not Resolved]
  - Amino acid level increased [Not Recovered/Not Resolved]

NARRATIVE: CASE EVENT DATE: 20150101
